FAERS Safety Report 6259009-8 (Version None)
Quarter: 2009Q3

REPORT INFORMATION
  Report Type: 
  Country: None (occurrence: None)
  Receive Date: 20090707
  Receipt Date: 20090629
  Transmission Date: 20100115
  Serious: Yes (Other)
  Sender: FDA-Public Use
  Company Number: PHEH2009US06919

PATIENT
  Sex: Female

DRUGS (10)
  1. AREDIA [Suspect]
     Indication: BREAST CANCER STAGE IV
     Dosage: 90 MG, QMO
     Route: 042
     Dates: start: 20000401
  2. AREDIA [Suspect]
     Dosage: 90 MG, QMO
     Dates: start: 20071101, end: 20090601
  3. ZOMETA [Suspect]
     Indication: BREAST CANCER STAGE IV
     Dosage: 4 MG, QMO
     Dates: start: 20021001
  4. ABRAXANE [Concomitant]
  5. AVASTIN [Concomitant]
  6. BENADRYL ^PFIZER WARNER-LAMBERT^ [Concomitant]
  7. KYTRIL [Concomitant]
  8. LUPRON [Concomitant]
  9. NEULASTA [Concomitant]
  10. ZANTAC [Concomitant]

REACTIONS (1)
  - OSTEONECROSIS [None]
